FAERS Safety Report 20806891 (Version 2)
Quarter: 2022Q2

REPORT INFORMATION
  Report Type: Report from Study
  Country: US (occurrence: US)
  Receive Date: 20220510
  Receipt Date: 20220601
  Transmission Date: 20220720
  Serious: Yes (Other)
  Sender: FDA-Public Use
  Company Number: US-BRISTOL-MYERS SQUIBB COMPANY-2022-028972

PATIENT
  Age: 61 Year
  Sex: Male
  Weight: 70.3 kg

DRUGS (7)
  1. POMALIDOMIDE [Suspect]
     Active Substance: POMALIDOMIDE
     Indication: Plasma cell myeloma
     Dosage: TAKE 1 CAPSULES FOR ONCE A DAY FOR 7 DAYS OFF OF A 21 DAYS
     Route: 048
     Dates: start: 202204
  2. POMALIDOMIDE [Suspect]
     Active Substance: POMALIDOMIDE
     Dosage: FREQUENCY: 21 OUT OF 28 DAYS
     Route: 048
     Dates: start: 202204
  3. ASPIRIN [Concomitant]
     Active Substance: ASPIRIN
  4. LABETALOL [Concomitant]
     Active Substance: LABETALOL\LABETALOL HYDROCHLORIDE
  5. DEXAMETHASONE [Concomitant]
     Active Substance: DEXAMETHASONE
  6. CLINDAMYCIN [Concomitant]
     Active Substance: CLINDAMYCIN
  7. ACYCLOVIR [Concomitant]
     Active Substance: ACYCLOVIR

REACTIONS (3)
  - Nasopharyngitis [Unknown]
  - Cataract [Unknown]
  - Oral disorder [Unknown]

NARRATIVE: CASE EVENT DATE: 20220201
